FAERS Safety Report 22108599 (Version 1)
Quarter: 2023Q1

REPORT INFORMATION
  Report Type: Spontaneous
  Country: US (occurrence: None)
  Receive Date: 20230317
  Receipt Date: 20230317
  Transmission Date: 20230417
  Serious: Yes (Death)
  Sender: FDA-Public Use
  Company Number: 2023A063125

PATIENT
  Sex: Male

DRUGS (2)
  1. IMFINZI [Suspect]
     Active Substance: DURVALUMAB
     Indication: Cholangiocarcinoma
     Dosage: UNKNOWN
     Route: 042
  2. CISPLATIN/GEMCITABINE [Concomitant]
     Indication: Cholangiocarcinoma

REACTIONS (1)
  - Malignant neoplasm progression [Fatal]
